FAERS Safety Report 14294138 (Version 1)
Quarter: 2017Q4

REPORT INFORMATION
  Report Type: Report from Study
  Country: None (occurrence: IT)
  Receive Date: 20171217
  Receipt Date: 20171217
  Transmission Date: 20180321
  Serious: Yes (Other)
  Sender: FDA-Public Use
  Company Number: IT-ABBVIE-17K-083-2195496-00

PATIENT
  Age: 76 Year
  Sex: Male

DRUGS (1)
  1. DUODOPA [Suspect]
     Active Substance: CARBIDOPA\LEVODOPA
     Indication: PARKINSON^S DISEASE
     Dosage: MD 7??CR 3,1??ED 1,5
     Route: 050
     Dates: start: 20171212, end: 20171214

REACTIONS (3)
  - Psychotic disorder [Unknown]
  - Dissociation [Unknown]
  - Agitation [Unknown]

NARRATIVE: CASE EVENT DATE: 201712
